FAERS Safety Report 11912650 (Version 1)
Quarter: 2016Q1

REPORT INFORMATION
  Report Type: Spontaneous
  Country: US (occurrence: None)
  Receive Date: 20160112
  Receipt Date: 20160112
  Transmission Date: 20160526
  Serious: Yes (Hospitalization)
  Sender: FDA-Public Use
  Company Number: None

PATIENT
  Age: 80 Year
  Sex: Female
  Weight: 68.04 kg

DRUGS (4)
  1. XARELTO [Suspect]
     Active Substance: RIVAROXABAN
     Indication: THROMBOSIS
     Dosage: TAKEN BY MOUTH (PILLS)
     Dates: start: 20151227
  2. VITAMINS [Concomitant]
     Active Substance: VITAMINS
  3. THYROID MEDICINE [Concomitant]
     Active Substance: UNSPECIFIED INGREDIENT
  4. IRON [Concomitant]
     Active Substance: IRON

REACTIONS (4)
  - Internal haemorrhage [None]
  - Haematochezia [None]
  - Hypertension [None]
  - Epistaxis [None]

NARRATIVE: CASE EVENT DATE: 20160110
